FAERS Safety Report 7449072-0 (Version None)
Quarter: 2011Q2

REPORT INFORMATION
  Report Type: 
  Country: None (occurrence: None)
  Receive Date: 20110502
  Receipt Date: 20091104
  Transmission Date: 20111010
  Serious: Yes (Other)
  Sender: FDA-Public Use
  Company Number: US-BAYER-200939343NA

PATIENT
  Age: 53 Year
  Sex: Male
  Weight: 100.68 kg

DRUGS (28)
  1. HUMALOG [Concomitant]
     Indication: BLOOD GLUCOSE INCREASED
     Dosage: 5 UNITS IF BS}200
     Route: 058
  2. SPIRIVA [Concomitant]
     Route: 055
  3. FORADIL [Concomitant]
     Route: 055
  4. TENORMIN [Concomitant]
     Indication: HYPERTENSION
     Dosage: 50 MG, BID
     Route: 048
  5. BACTROBAN [Concomitant]
     Route: 061
  6. SUFENTA PRESERVATIVE FREE [Concomitant]
     Dosage: 20 MCG/HR
     Route: 042
     Dates: start: 20060227, end: 20060227
  7. TRASYLOL [Suspect]
     Indication: CORONARY REVASCULARISATION
     Dosage: 200 UNK, ONCE (LOADING)
     Route: 042
     Dates: start: 20060227, end: 20060227
  8. TRASYLOL [Suspect]
     Dosage: 50 ML/HR
     Route: 042
     Dates: start: 20060227, end: 20060227
  9. TORSEMIDE [Concomitant]
     Dosage: 10 MG, UNK
     Route: 048
  10. ASCORBIC ACID [Concomitant]
     Dosage: 500 MG, UNK
     Route: 048
  11. MANNITOL [Concomitant]
     Dosage: 100 VIA CARDIOPULMONARY BYPASS
     Dates: start: 20060227, end: 20060227
  12. LASIX [Concomitant]
     Indication: DIURETIC THERAPY
     Dosage: 80 MG, BID
     Route: 048
  13. AZITHROMYCIN [Concomitant]
     Dosage: 1500 MG, UNK
     Route: 048
  14. PROPOFOL [Concomitant]
     Dosage: 100 MG, UNK
     Route: 042
     Dates: start: 20060227, end: 20060227
  15. SUFENTA PRESERVATIVE FREE [Concomitant]
     Dosage: 50 MCG
     Route: 042
     Dates: start: 20060227, end: 20060227
  16. K-DUR [Concomitant]
     Dosage: 20 MEQ, QD
     Route: 048
  17. GLUCOPHAGE XR [Concomitant]
     Indication: BLOOD GLUCOSE INCREASED
     Dosage: 500 MG, BID
     Route: 048
  18. ANCEF [Concomitant]
     Dosage: 2 G, UNK
     Route: 042
     Dates: start: 20060227, end: 20060227
  19. LIDOCAINE [Concomitant]
     Dosage: UNK
     Route: 042
     Dates: start: 20060227, end: 20060227
  20. NORCURON [Concomitant]
     Dosage: 2 MG, UNK
     Route: 042
     Dates: start: 20060227, end: 20060227
  21. HEPARIN [Concomitant]
     Dosage: 10-13 UNITS/HR
     Route: 042
     Dates: start: 20060227, end: 20060227
  22. HEPARIN [Concomitant]
     Dosage: 5 VIA CARDIOPULMONARY BYPASS
     Dates: start: 20060227, end: 20060227
  23. INSULIN RAPID [INSULIN] [Concomitant]
     Dosage: 20-30 UNITS/HR
     Route: 042
     Dates: start: 20060227, end: 20060227
  24. LOTREL [Concomitant]
     Indication: HYPERTENSION
     Dosage: 10/20 MG DAILY
     Route: 048
  25. LANTUS [Concomitant]
     Indication: BLOOD GLUCOSE INCREASED
     Dosage: 55 U, HS
     Route: 058
  26. VANCOMYCIN [Concomitant]
     Dosage: 1.5 G, UNK
     Route: 042
     Dates: start: 20060227, end: 20060227
  27. ACETYLSALICYLIC ACID SRT [Concomitant]
     Indication: CARDIOVASCULAR DISORDER
     Dosage: 325 MG, QD
     Route: 048
  28. LIPITOR [Concomitant]
     Indication: HYPERLIPIDAEMIA
     Dosage: 20 MG, QD
     Route: 048

REACTIONS (5)
  - EMOTIONAL DISTRESS [None]
  - CEREBROVASCULAR ACCIDENT [None]
  - PAIN [None]
  - ANXIETY [None]
  - INJURY [None]
